FAERS Safety Report 15907690 (Version 5)
Quarter: 2020Q4

REPORT INFORMATION
  Report Type: Spontaneous
  Country: US (occurrence: US)
  Receive Date: 20190204
  Receipt Date: 20201123
  Transmission Date: 20210113
  Serious: Yes (Other)
  Sender: FDA-Public Use
  Company Number: US-PFIZER INC-2019043566

PATIENT
  Age: 63 Year
  Sex: Male
  Weight: 90.72 kg

DRUGS (1)
  1. LYRICA [Suspect]
     Active Substance: PREGABALIN
     Indication: DIABETIC NEUROPATHY
     Dosage: 200 MG, 2X/DAY(TWO CAPSULES IN THE MORNING AND TWO CAPSULES AT NIGHT)
     Route: 048

REACTIONS (2)
  - Prostate cancer [Unknown]
  - Off label use [Unknown]

NARRATIVE: CASE EVENT DATE: 201808
